FAERS Safety Report 20314451 (Version 1)
Quarter: 2022Q1

REPORT INFORMATION
  Report Type: Report from Study
  Country: CA (occurrence: CA)
  Receive Date: 20220110
  Receipt Date: 20220110
  Transmission Date: 20220423
  Serious: Yes (Other)
  Sender: FDA-Public Use
  Company Number: CA-PFIZER INC-202200004214

PATIENT
  Age: 56 Year
  Sex: Male

DRUGS (6)
  1. LORAZEPAM [Suspect]
     Active Substance: LORAZEPAM
     Route: 065
  2. BISOPROLOL [Suspect]
     Active Substance: BISOPROLOL
     Dosage: UNK
     Route: 065
  3. BUDESONIDE\FORMOTEROL FUMARATE [Concomitant]
     Active Substance: BUDESONIDE\FORMOTEROL FUMARATE
     Dosage: 8 DF, 1X/DAY
     Route: 055
  4. SPIRIVA [Concomitant]
     Active Substance: TIOTROPIUM BROMIDE MONOHYDRATE
     Dosage: 2 DF, 1X/DAY
     Route: 055
  5. TRAZODONE [Concomitant]
     Active Substance: TRAZODONE HYDROCHLORIDE
     Dosage: UNK
     Route: 065
  6. VENTOLIN [Concomitant]
     Active Substance: ALBUTEROL SULFATE
     Dosage: UNK
     Route: 055

REACTIONS (19)
  - Alanine aminotransferase increased [Unknown]
  - Allergy to animal [Unknown]
  - Atrial fibrillation [Unknown]
  - Atrial flutter [Unknown]
  - Blood immunoglobulin E increased [Unknown]
  - Conjunctivitis [Unknown]
  - Fungal infection [Unknown]
  - Glycosylated haemoglobin increased [Unknown]
  - Hypertension [Unknown]
  - Mite allergy [Unknown]
  - Overweight [Unknown]
  - Panic attack [Unknown]
  - Pneumonia [Unknown]
  - Post-traumatic stress disorder [Unknown]
  - Respiratory tract infection [Unknown]
  - Rhinitis [Unknown]
  - Seasonal allergy [Unknown]
  - Type 2 diabetes mellitus [Unknown]
  - Urticaria contact [Unknown]
